FAERS Safety Report 7667828-6 (Version None)
Quarter: 2011Q3

REPORT INFORMATION
  Report Type: 
  Country: None (occurrence: None)
  Receive Date: 20110806
  Receipt Date: 20110411
  Transmission Date: 20111222
  Serious: No
  Sender: FDA-Public Use
  Company Number: US-ABBOTT-11P-163-0718338-00

PATIENT
  Sex: Female
  Weight: 63.56 kg

DRUGS (7)
  1. NIASPAN [Suspect]
     Indication: ARTERIOSCLEROSIS
     Dates: start: 20110407
  2. NIASPAN [Suspect]
     Dates: start: 20110304, end: 20110406
  3. FISH OIL [Concomitant]
     Indication: SUPPLEMENTATION THERAPY
  4. ASPIRIN [Concomitant]
     Indication: CARDIAC DISORDER
  5. RAMIPRIL [Concomitant]
     Indication: HYPERTENSION
  6. ASPIRIN [Concomitant]
     Indication: PROPHYLAXIS
  7. CRESTOR [Concomitant]
     Indication: BLOOD CHOLESTEROL INCREASED

REACTIONS (1)
  - MEDICATION RESIDUE [None]
